FAERS Safety Report 8726151 (Version 2)
Quarter: 2012Q4

REPORT INFORMATION
  Report Type: 
  Country: IR (occurrence: IR)
  Receive Date: 20120816
  Receipt Date: 20120830
  Transmission Date: 20130627
  Serious: Yes (Death, Hospitalization)
  Sender: FDA-Public Use
  Company Number: IR-MILLENNIUM PHARMACEUTICALS, INC.-2012-05515

PATIENT

DRUGS (2)
  1. VELCADE [Suspect]
     Indication: MULTIPLE MYELOMA
     Dosage: 2.2 mg, Cyclic
     Route: 042
     Dates: start: 20120715, end: 20120726
  2. THALIDOMIDE [Concomitant]
     Indication: MULTIPLE MYELOMA
     Dosage: 100 mg, UNK

REACTIONS (2)
  - Aspiration [Fatal]
  - Convulsion [Unknown]
